FAERS Safety Report 14263238 (Version 4)
Quarter: 2019Q2

REPORT INFORMATION
  Report Type: Report from Study
  Country: US (occurrence: US)
  Receive Date: 20171208
  Receipt Date: 20190626
  Transmission Date: 20190711
  Serious: Yes (Hospitalization, Other)
  Sender: FDA-Public Use
  Company Number: US-PFIZER INC-2017525433

PATIENT
  Age: 70 Year
  Sex: Female

DRUGS (6)
  1. HUMIRA [Suspect]
     Active Substance: ADALIMUMAB
     Indication: RHEUMATOID ARTHRITIS
     Dosage: UNK
     Route: 058
     Dates: end: 2017
  2. METHOTREXATE. [Concomitant]
     Active Substance: METHOTREXATE
     Dosage: UNK
     Dates: end: 2017
  3. PREDNISONE. [Concomitant]
     Active Substance: PREDNISONE
     Dosage: 10 MG, DAILY (5 MG, 2 IN 1 D))
     Dates: start: 2018
  4. TYLENOL [Concomitant]
     Active Substance: ACETAMINOPHEN
     Dosage: 500 MG, UNK
  5. CELEBREX [Suspect]
     Active Substance: CELECOXIB
     Indication: RHEUMATOID ARTHRITIS
     Dosage: UNK
     Dates: end: 2017
  6. ADVIL [Concomitant]
     Active Substance: IBUPROFEN
     Dosage: 400 MG, DAILY (200 MG, 2 IN 1 D)

REACTIONS (12)
  - Contusion [Not Recovered/Not Resolved]
  - Weight decreased [Unknown]
  - Brain injury [Recovered/Resolved]
  - Syncope [Recovering/Resolving]
  - Hypoaesthesia [Not Recovered/Not Resolved]
  - Fall [Recovering/Resolving]
  - Cerebral haemorrhage [Recovered/Resolved]
  - Hemiplegia [Recovering/Resolving]
  - Rheumatoid arthritis [Recovering/Resolving]
  - Post procedural complication [Unknown]
  - Stress [Unknown]
  - Neuropathy peripheral [Unknown]

NARRATIVE: CASE EVENT DATE: 2017
